FAERS Safety Report 4877540-4 (Version None)
Quarter: 2006Q1

REPORT INFORMATION
  Report Type: 
  Country: None (occurrence: None)
  Receive Date: 20060109
  Receipt Date: 20051228
  Transmission Date: 20060701
  Serious: Yes (Other)
  Sender: FDA-Public Use
  Company Number: 2005047730

PATIENT
  Age: 41 Year
  Sex: Female
  Weight: 56.246 kg

DRUGS (4)
  1. LISTERINE ANTISEPTIC MOUTHWASH [Suspect]
     Dosage: UNSPECIFIED, ORAL TOPICAL
     Route: 048
     Dates: start: 20030101
  2. TARTAR CONTROL LISTERINE (MENTHOL, ZINC CHLORIDE, METHYL SALICYLATE, E [Suspect]
     Dosage: UNSPECIFIED, ORAL TOPICAL
     Route: 048
     Dates: start: 20050201
  3. ASCORBIC ACID [Concomitant]
  4. IBUPROFEN [Concomitant]

REACTIONS (17)
  - ANXIETY [None]
  - BACTERIAL INFECTION [None]
  - CHEST PAIN [None]
  - DIZZINESS [None]
  - DYSPNOEA [None]
  - ERYTHEMA [None]
  - ESCHERICHIA INFECTION [None]
  - FOOD ALLERGY [None]
  - GLOSSODYNIA [None]
  - HEART RATE INCREASED [None]
  - HYPERHIDROSIS [None]
  - HYPOAESTHESIA ORAL [None]
  - PARAESTHESIA [None]
  - SCAR [None]
  - SWELLING FACE [None]
  - TONGUE HAEMORRHAGE [None]
  - TREMOR [None]
